FAERS Safety Report 21426337 (Version 1)
Quarter: 2022Q4

REPORT INFORMATION
  Report Type: Spontaneous
  Country: US (occurrence: US)
  Receive Date: 20221008
  Receipt Date: 20221008
  Transmission Date: 20230113
  Serious: Yes (Death)
  Sender: FDA-Public Use
  Company Number: US-ABBVIE-4146549

PATIENT
  Age: 81 Year
  Sex: Female

DRUGS (8)
  1. POTASSIUM CHLORIDE [Suspect]
     Active Substance: POTASSIUM CHLORIDE
     Indication: Product used for unknown indication
     Route: 048
  2. PANTOPRAZOLE [Suspect]
     Active Substance: PANTOPRAZOLE
     Indication: Product used for unknown indication
     Route: 048
  3. CARVEDILOL [Suspect]
     Active Substance: CARVEDILOL
     Indication: Product used for unknown indication
     Route: 048
  4. REPAGLINIDE [Suspect]
     Active Substance: REPAGLINIDE
     Indication: Product used for unknown indication
     Route: 048
  5. CLONIDINE [Suspect]
     Active Substance: CLONIDINE
     Indication: Product used for unknown indication
     Route: 048
  6. ACETAMINOPHEN AND CODEINE [Suspect]
     Active Substance: ACETAMINOPHEN\CODEINE PHOSPHATE
     Indication: Product used for unknown indication
     Route: 048
  7. VITAMIN D [Suspect]
     Active Substance: VITAMIN D NOS
     Indication: Product used for unknown indication
     Route: 048
  8. ATORVASTATIN [Suspect]
     Active Substance: ATORVASTATIN
     Indication: Product used for unknown indication
     Route: 048

REACTIONS (4)
  - Completed suicide [Fatal]
  - Cardiac arrest [Fatal]
  - Respiratory arrest [Fatal]
  - Cardio-respiratory arrest [Fatal]
